FAERS Safety Report 23395217 (Version 2)
Quarter: 2024Q1

REPORT INFORMATION
  Report Type: Report from Study
  Country: CA (occurrence: CA)
  Receive Date: 20240112
  Receipt Date: 20240209
  Transmission Date: 20240409
  Serious: Yes (Death, Other)
  Sender: FDA-Public Use
  Company Number: CA-Ipsen Biopharmaceuticals, Inc.-2023-19434

PATIENT
  Age: 85 Year
  Sex: Male

DRUGS (13)
  1. LANREOTIDE ACETATE [Suspect]
     Active Substance: LANREOTIDE ACETATE
     Indication: Gastroenteropancreatic neuroendocrine tumour disease
     Route: 058
     Dates: start: 20220804
  2. ATORVASTATIN [Concomitant]
     Active Substance: ATORVASTATIN
     Dosage: 20 MG 1 CO DIE
  3. CALCIUM CARBONATE [Concomitant]
     Active Substance: CALCIUM CARBONATE
     Dosage: 500 MG 1 CO BID
  4. VITAMIN D NOS [Concomitant]
     Active Substance: VITAMIN D NOS
     Dosage: 1000 IU 1 CO DIE
  5. SINEMET [Concomitant]
     Active Substance: CARBIDOPA\LEVODOPA
     Dosage: LEVODOPA- CARBIDOPA 100MG-10MG, 100/10 MG1 CO TID
     Route: 048
  6. CARBIDOPA\LEVODOPA [Concomitant]
     Active Substance: CARBIDOPA\LEVODOPA
     Dosage: LEVODOPA-CARBIDOPA LEVOCARB CR 100MG-10MG (PHARMACIST ADAPTED TO 100/25 MG CR), 100/25 1 CO DIE
  7. SYNTHROID [Concomitant]
     Active Substance: LEVOTHYROXINE SODIUM
     Dosage: (SYNTHROID ORAL TABLET) 125 MCH PO OD?0.125 MG 1 CO DIE
     Route: 048
  8. METOPROLOL [Concomitant]
     Active Substance: METOPROLOL
     Dosage: 25MG PO OD
  9. METOPROLOL [Concomitant]
     Active Substance: METOPROLOL
     Dosage: 100/10 MG1 CO TID
  10. TAMSULOSIN [Concomitant]
     Active Substance: TAMSULOSIN
     Dosage: ER 0.4 MG 1 CO DIE
     Route: 048
  11. CARBIDOPA\LEVODOPA [Concomitant]
     Active Substance: CARBIDOPA\LEVODOPA
     Dosage: 100/25 1 CO DIE
     Route: 048
  12. CARBIDOPA\LEVODOPA [Concomitant]
     Active Substance: CARBIDOPA\LEVODOPA
     Dosage: 100/10 MG1 CO TID
  13. LEVOTHYROXINE [Concomitant]
     Active Substance: LEVOTHYROXINE\LEVOTHYROXINE SODIUM

REACTIONS (1)
  - Death [Fatal]

NARRATIVE: CASE EVENT DATE: 20231222
